FAERS Safety Report 9192428 (Version 3)
Quarter: 2013Q3

REPORT INFORMATION
  Report Type: Spontaneous
  Country: US (occurrence: US)
  Receive Date: 20130327
  Receipt Date: 20130715
  Transmission Date: 20140515
  Serious: Yes (Death, Hospitalization)
  Sender: FDA-Public Use
  Company Number: US-ELI_LILLY_AND_COMPANY-US201303006917

PATIENT
  Age: 78 Year
  Sex: Female
  Weight: 92.2 kg

DRUGS (10)
  1. ZYPREXA RELPREVV [Suspect]
     Indication: SCHIZOAFFECTIVE DISORDER
     Dosage: 300 MG, Q2W
     Route: 030
     Dates: start: 20111104, end: 20130207
  2. ZYPREXA RELPREVV [Suspect]
     Dosage: 405 MG, Q2W
     Route: 030
     Dates: start: 20130208
  3. LEXAPRO [Concomitant]
     Dosage: 10 MG, UNK
     Route: 048
  4. ADVAIR DISKUS [Concomitant]
     Indication: CHRONIC OBSTRUCTIVE PULMONARY DISEASE
     Dosage: 250 UG, UNK
     Route: 055
  5. SPIRIVA [Concomitant]
     Indication: CHRONIC OBSTRUCTIVE PULMONARY DISEASE
     Dosage: 18 UG, UNK
     Route: 055
  6. ATORVASTATIN [Concomitant]
     Dosage: 10 MG, UNK
     Route: 048
  7. KEFLEX                                  /UNK/ [Concomitant]
     Dosage: 500 MG, UNK
     Route: 048
  8. PROPANOLOL [Concomitant]
     Dosage: 20 MG, UNK
     Route: 048
  9. TYLENOL                                 /SCH/ [Concomitant]
     Dosage: 650 MG, UNK
  10. TOBRADEX [Concomitant]

REACTIONS (12)
  - Respiratory failure [Fatal]
  - Cardiac failure congestive [Fatal]
  - Chronic obstructive pulmonary disease [Fatal]
  - Sepsis [Unknown]
  - Abdominal distension [Unknown]
  - Body temperature increased [Unknown]
  - Lethargy [Unknown]
  - Depressed level of consciousness [Unknown]
  - Dysarthria [Unknown]
  - Sedation [Unknown]
  - Wound [Unknown]
  - Prescribed overdose [Unknown]
